FAERS Safety Report 6779841-1 (Version None)
Quarter: 2010Q2

REPORT INFORMATION
  Report Type: 
  Country: None (occurrence: None)
  Receive Date: 20100618
  Receipt Date: 20100609
  Transmission Date: 20101027
  Serious: Yes (Death, Hospitalization)
  Sender: FDA-Public Use
  Company Number: FR-PFIZER INC-2010072181

PATIENT
  Age: 63 Year
  Sex: Male

DRUGS (12)
  1. CLINDAMYCIN HCL [Suspect]
     Dosage: 600 MG, 3X/DAY
     Route: 042
     Dates: start: 20100514, end: 20100528
  2. VALGANCICLOVIR [Suspect]
     Dosage: 500 MG, 2X/DAY
     Route: 048
     Dates: start: 20100512, end: 20100529
  3. CELLCEPT [Concomitant]
  4. CORTANCYL [Concomitant]
  5. RAMIPRIL [Concomitant]
  6. NEXIUM [Concomitant]
  7. TENORMIN [Concomitant]
  8. FUNGIZONE [Concomitant]
  9. CALCIPARINE [Concomitant]
     Dosage: UNK
     Dates: start: 20100512, end: 20100525
  10. PREVISCAN [Concomitant]
     Dosage: UNK
     Dates: start: 20100517
  11. CORDARONE [Concomitant]
     Dosage: UNK
     Dates: start: 20100512
  12. PNEUMOVAX 23 [Concomitant]
     Dosage: UNK
     Dates: start: 20100518

REACTIONS (2)
  - NEUTROPENIA [None]
  - SEPTIC SHOCK [None]
